FAERS Safety Report 9269700 (Version 2)
Quarter: 2013Q2

REPORT INFORMATION
  Report Type: Spontaneous
  Country: FR (occurrence: FR)
  Receive Date: 20130503
  Receipt Date: 20130506
  Transmission Date: 20140414
  Serious: Yes (Other)
  Sender: FDA-Public Use
  Company Number: FR-BRISTOL-MYERS SQUIBB COMPANY-18825885

PATIENT
  Sex: Female

DRUGS (1)
  1. SPRYCEL [Suspect]
     Indication: CHRONIC MYELOID LEUKAEMIA
     Dosage: DECRE TO 70MG/DAY
     Dates: start: 2012

REACTIONS (2)
  - Hepatocellular injury [Not Recovered/Not Resolved]
  - Cholestasis [Unknown]
